FAERS Safety Report 9613743 (Version 4)
Quarter: 2013Q4

REPORT INFORMATION
  Report Type: Report from Study
  Country: JP (occurrence: JP)
  Receive Date: 20131010
  Receipt Date: 20131101
  Transmission Date: 20140711
  Serious: Yes (Other)
  Sender: FDA-Public Use
  Company Number: JP-OTSUKA-JP-2013-13419

PATIENT
  Age: 78 Year
  Sex: Female
  Weight: 55.1 kg

DRUGS (16)
  1. SAMSCA [Suspect]
     Indication: FLUID RETENTION
     Dosage: 7.5 MG MILLIGRAM(S), QAM
     Route: 048
     Dates: start: 20120906, end: 20120908
  2. SAMSCA [Suspect]
     Dosage: 15 MG MILLIGRAM(S), QAM
     Route: 048
     Dates: start: 20120909
  3. LASIX [Concomitant]
     Indication: CARDIAC FAILURE
     Dosage: 20 MG MILLIGRAM(S), DAILY DOSE
     Route: 042
     Dates: end: 20120917
  4. WARFARIN K [Concomitant]
     Dosage: 3.5 MG MILLIGRAM(S), DAILY DOSE
     Route: 048
  5. LASIX [Concomitant]
     Indication: CARDIAC FAILURE
     Dosage: 80 MG MILLIGRAM(S), DAILY DOSE
     Route: 048
  6. PRORENAL [Concomitant]
     Dosage: 15 MCG, DAILY DOSE
     Route: 048
  7. DIART [Concomitant]
     Indication: CARDIAC FAILURE
     Dosage: 120 MG MILLIGRAM(S), DAILY DOSE
     Route: 048
  8. TAKEPRON [Concomitant]
     Indication: PROPHYLAXIS
     Dosage: 15 MG MILLIGRAM(S), DAILY DOSE
     Route: 048
  9. DEPAS [Concomitant]
     Indication: INSOMNIA
     Dosage: 0.5 MG MILLIGRAM(S), DAILY DOSE
     Route: 048
  10. BLOPRESS [Concomitant]
     Indication: CARDIAC FAILURE
     Dosage: 1 MG MILLIGRAM(S), DAILY DOSE
     Route: 048
  11. PIMOBENDAN [Concomitant]
     Indication: CARDIAC FAILURE
     Dosage: 5 MG MILLIGRAM(S), DAILY DOSE
     Route: 048
  12. FERROMIA [Concomitant]
     Dosage: 200 MG MILLIGRAM(S), DAILY DOSE
     Route: 048
  13. LANDSEN [Concomitant]
     Dosage: 1 MG MILLIGRAM(S), DAILY DOSE
     Route: 048
  14. LYRICA [Concomitant]
     Dosage: 100 MG MILLIGRAM(S), DAILY DOSE
     Route: 048
  15. EPOGIN [Concomitant]
     Dosage: 6 KIU IU(1000S), QW
     Route: 058
  16. RISUMIC [Concomitant]
     Indication: CARDIAC FAILURE
     Dosage: 10 MG MILLIGRAM(S), DAILY DOSE
     Route: 048
     Dates: start: 20120912

REACTIONS (2)
  - Renal impairment [Recovered/Resolved]
  - Hyperkalaemia [Recovered/Resolved]
